FAERS Safety Report 23857117 (Version 1)
Quarter: 2024Q2

REPORT INFORMATION
  Report Type: Other
  Country: CN (occurrence: None)
  Receive Date: 20240515
  Receipt Date: 20240515
  Transmission Date: 20240715
  Serious: Yes (Death, Other)
  Sender: FDA-Public Use
  Company Number: CN-ROCHE-3562826

PATIENT

DRUGS (2)
  1. RITUXIMAB [Suspect]
     Active Substance: RITUXIMAB
     Indication: Product used for unknown indication
     Route: 065
  2. BLINATUMOMAB [Suspect]
     Active Substance: BLINATUMOMAB
     Indication: Product used for unknown indication
     Route: 065

REACTIONS (10)
  - COVID-19 [Fatal]
  - Klebsiella sepsis [Fatal]
  - Respiratory failure [Unknown]
  - Encephalitis [Unknown]
  - Superinfection bacterial [Unknown]
  - Superinfection fungal [Unknown]
  - Pneumonia klebsiella [Unknown]
  - Stenotrophomonas infection [Unknown]
  - Enterococcal infection [Unknown]
  - Mycoplasma infection [Unknown]
